FAERS Safety Report 6829103-9 (Version None)
Quarter: 2010Q3

REPORT INFORMATION
  Report Type: 
  Country: None (occurrence: None)
  Receive Date: 20100709
  Receipt Date: 20070228
  Transmission Date: 20110219
  Serious: No
  Sender: FDA-Public Use
  Company Number: US-PFIZER INC-2007016948

PATIENT
  Sex: Male
  Weight: 88 kg

DRUGS (3)
  1. CHANTIX [Suspect]
     Indication: SMOKING CESSATION THERAPY
     Dates: start: 20070208, end: 20070224
  2. CORAL CALCIUM [Concomitant]
  3. MULTI-VITAMINS [Concomitant]

REACTIONS (3)
  - HYPERSOMNIA [None]
  - NIGHTMARE [None]
  - URTICARIA [None]
